FAERS Safety Report 26025848 (Version 1)
Quarter: 2025Q4

REPORT INFORMATION
  Report Type: Spontaneous
  Country: US (occurrence: US)
  Receive Date: 20251111
  Receipt Date: 20251111
  Transmission Date: 20260118
  Serious: No
  Sender: Kenvue
  Company Number: US-KENVUE-20251012304

PATIENT
  Sex: Female

DRUGS (1)
  1. MENS ROGAINE EXTRA STRENGTH [Suspect]
     Active Substance: MINOXIDIL
     Indication: Alopecia
     Dosage: MEASURED AMOUNT ON THE DROPPER , ONCE A DAY
     Route: 061
     Dates: start: 202507

REACTIONS (3)
  - Application site pruritus [Not Recovered/Not Resolved]
  - Product use issue [Unknown]
  - Intentional product misuse [Unknown]

NARRATIVE: CASE EVENT DATE: 20250701
